FAERS Safety Report 10241509 (Version 5)
Quarter: 2014Q4

REPORT INFORMATION
  Report Type: Spontaneous
  Country: FR (occurrence: FR)
  Receive Date: 20140617
  Receipt Date: 20141112
  Transmission Date: 20150528
  Serious: Yes (Hospitalization, Other)
  Sender: FDA-Public Use
  Company Number: FR-ELI_LILLY_AND_COMPANY-FR201406002234

PATIENT
  Age: 85 Year
  Sex: Male

DRUGS (1)
  1. CYMBALTA [Suspect]
     Active Substance: DULOXETINE HYDROCHLORIDE
     Indication: PRODUCT USED FOR UNKNOWN INDICATION
     Dosage: UNK, UNKNOWN
     Route: 065
     Dates: start: 20131128, end: 20140428

REACTIONS (6)
  - Rectal ulcer [Recovered/Resolved]
  - Rectal haemorrhage [Recovered/Resolved]
  - Renal cyst [Recovered/Resolved]
  - Infection [Recovered/Resolved]
  - Biliary cyst [Recovered/Resolved]
  - Nodule [Recovered/Resolved]

NARRATIVE: CASE EVENT DATE: 201404
